FAERS Safety Report 8662028 (Version 2)
Quarter: 2012Q4

REPORT INFORMATION
  Report Type: 
  Country: SE (occurrence: SE)
  Receive Date: 20120712
  Receipt Date: 20121016
  Transmission Date: 20130627
  Serious: Yes (Other)
  Sender: FDA-Public Use
  Company Number: SE-GLAXOSMITHKLINE-B0813682A

PATIENT
  Age: 45 Year
  Sex: Female

DRUGS (4)
  1. TYVERB [Suspect]
     Indication: BREAST CANCER METASTATIC
     Dosage: 1250MG per day
     Route: 065
     Dates: start: 201204
  2. XELODA [Suspect]
     Indication: BREAST CANCER METASTATIC
     Dosage: 500MG Twice per day
     Route: 065
     Dates: start: 20120606
  3. ZOLADEX [Concomitant]
     Indication: BREAST CANCER METASTATIC
     Dosage: 3.6MG Monthly
     Route: 058
     Dates: start: 2003
  4. ZOMETA [Concomitant]
     Indication: BREAST CANCER METASTATIC
     Dates: start: 2003

REACTIONS (2)
  - Wound haemorrhage [Recovered/Resolved]
  - Rash pustular [Recovered/Resolved]
